FAERS Safety Report 15066869 (Version 1)
Quarter: 2018Q2

REPORT INFORMATION
  Report Type: Spontaneous
  Country: US (occurrence: US)
  Receive Date: 20180606
  Receipt Date: 20180606
  Transmission Date: 20180711
  Serious: No
  Sender: FDA-Public Use
  Company Number: None

PATIENT
  Age: 29 Year
  Sex: Female

DRUGS (2)
  1. TETRABENAZINE 12.5MG DR REDDY [Suspect]
     Active Substance: TETRABENAZINE
     Indication: ATTENTION DEFICIT/HYPERACTIVITY DISORDER
     Route: 048
     Dates: start: 20180531
  2. TETRABENAZINE 12.5MG DR REDDY [Suspect]
     Active Substance: TETRABENAZINE
     Route: 048

REACTIONS (4)
  - Paraesthesia [None]
  - Nausea [None]
  - Somnolence [None]
  - Back pain [None]

NARRATIVE: CASE EVENT DATE: 20180531
